FAERS Safety Report 23979056 (Version 1)
Quarter: 2024Q2

REPORT INFORMATION
  Report Type: Spontaneous
  Country: FR (occurrence: FR)
  Receive Date: 20240615
  Receipt Date: 20240615
  Transmission Date: 20240716
  Serious: Yes (Hospitalization, Other)
  Sender: FDA-Public Use
  Company Number: FR-AFSSAPS-PB2024000604

PATIENT
  Age: 91 Year
  Sex: Male

DRUGS (8)
  1. AMOXICILLIN [Suspect]
     Active Substance: AMOXICILLIN
     Indication: Meningitis listeria
     Dosage: 3 GRAM, 3 TIMES A DAY
     Route: 048
     Dates: start: 20240516
  2. AMOXICILLIN [Suspect]
     Active Substance: AMOXICILLIN
     Indication: Meningitis listeria
     Dosage: 3 GRAM, 3 TIMES A DAY
     Route: 042
     Dates: start: 20240502
  3. GENTAMICIN [Suspect]
     Active Substance: GENTAMICIN
     Indication: Meningitis listeria
     Dosage: 5 MILLIGRAM/KILOGRAM
     Route: 042
     Dates: start: 20240502
  4. ATORVASTATIN [Concomitant]
     Active Substance: ATORVASTATIN
     Indication: Product used for unknown indication
     Dosage: UNK
     Route: 065
  5. ESCITALOPRAM [Concomitant]
     Active Substance: ESCITALOPRAM OXALATE
     Indication: Product used for unknown indication
     Dosage: UNK
     Route: 065
  6. METFORMIN HYDROCHLORIDE [Concomitant]
     Active Substance: METFORMIN HYDROCHLORIDE
     Indication: Diabetes mellitus
     Dosage: UNK
     Route: 065
  7. SITAGLIPTIN [Concomitant]
     Active Substance: SITAGLIPTIN
     Indication: Diabetes mellitus
     Dosage: UNK
     Route: 065
  8. TAMSULOSIN HYDROCHLORIDE [Concomitant]
     Active Substance: TAMSULOSIN HYDROCHLORIDE
     Indication: Product used for unknown indication
     Dosage: UNK
     Route: 065

REACTIONS (1)
  - Acute kidney injury [Not Recovered/Not Resolved]

NARRATIVE: CASE EVENT DATE: 20240524
